FAERS Safety Report 24781713 (Version 1)
Quarter: 2024Q4

REPORT INFORMATION
  Report Type: Spontaneous
  Country: CN (occurrence: CN)
  Receive Date: 20241227
  Receipt Date: 20241227
  Transmission Date: 20250115
  Serious: Yes (Other)
  Sender: AMGEN
  Company Number: CN-AMGEN-CHNSP2024253159

PATIENT

DRUGS (9)
  1. BLINCYTO [Suspect]
     Active Substance: BLINATUMOMAB
     Indication: B-cell type acute leukaemia
     Dosage: 35 MICROGRAM PER VIAL, QD (DURING WEEK 1)
     Route: 040
  2. BLINCYTO [Suspect]
     Active Substance: BLINATUMOMAB
     Dosage: (STANDARD DOSE, DURING WEEK 2), QD
     Route: 040
  3. DEXAMETHASONE [Concomitant]
     Active Substance: DEXAMETHASONE
     Indication: B-cell type acute leukaemia
     Dosage: 40 MILLIGRAM, QD (ON DAYS 1-4 AND 11-14)
     Route: 040
  4. DEXAMETHASONE [Concomitant]
     Active Substance: DEXAMETHASONE
     Dosage: 10 MILLIGRAM/SQ. METER (6-12 HOURS BEFORE STARTING BLINCYTO INFUSION) (ON DAY 1)
     Route: 040
  5. DEXAMETHASONE [Concomitant]
     Active Substance: DEXAMETHASONE
     Dosage: 5 MILLIGRAM/SQ. METER (0.5 HOURS AFTER THE INFUSION OF BLINCYTO)
     Route: 040
  6. DOXORUBICIN [Concomitant]
     Active Substance: DOXORUBICIN
     Indication: B-cell type acute leukaemia
     Dosage: 50 MILLIGRAM/SQ. METER (ON DAY 4)
     Route: 040
  7. VINCRISTINE [Concomitant]
     Active Substance: VINCRISTINE
     Indication: B-cell type acute leukaemia
     Dosage: 2 MILLIGRAM (ON DAYS 4 AND 11)
     Route: 040
  8. MESNA [Concomitant]
     Active Substance: MESNA
     Indication: B-cell type acute leukaemia
     Dosage: 0.4 GRAM (INJECTED AT 0, 4, AND 8 HOURS AFTER THE CYCLOPHOSPHAMIDE INFUSION ON DAYS 1-3)
     Route: 040
  9. CYCLOPHOSPHAMIDE [Concomitant]
     Active Substance: CYCLOPHOSPHAMIDE
     Indication: B-cell type acute leukaemia
     Dosage: 300 MILLIGRAM/SQ. METER, Q12H (ON DAYS 1-3)
     Route: 040

REACTIONS (1)
  - B-cell type acute leukaemia [Unknown]
